FAERS Safety Report 9726974 (Version 1)
Quarter: 2013Q4

REPORT INFORMATION
  Report Type: Spontaneous
  Country: US (occurrence: US)
  Receive Date: 20131203
  Receipt Date: 20131203
  Transmission Date: 20140711
  Serious: No
  Sender: FDA-Public Use
  Company Number: US-NOVEN-13US007427

PATIENT
  Age: 45 Year
  Sex: Female

DRUGS (2)
  1. FENTANYL [Suspect]
     Indication: PAIN
     Dosage: 75 UG/HR, Q 3DAYS
     Route: 062
     Dates: start: 20130702, end: 201307
  2. LORATAB [Concomitant]
     Dosage: UNK

REACTIONS (7)
  - Application site burn [Recovering/Resolving]
  - Application site vesicles [Recovering/Resolving]
  - Application site pain [Recovering/Resolving]
  - Application site warmth [Recovered/Resolved]
  - Application site pruritus [Recovered/Resolved]
  - Application site erythema [Not Recovered/Not Resolved]
  - Product quality issue [Unknown]
